FAERS Safety Report 6282492-9 (Version None)
Quarter: 2009Q3

REPORT INFORMATION
  Report Type: 
  Country: None (occurrence: None)
  Receive Date: 20090721
  Receipt Date: 20090721
  Transmission Date: 20100115
  Serious: Yes (Hospitalization)
  Sender: FDA-Public Use
  Company Number: None

PATIENT
  Age: 74 Year
  Sex: Female
  Weight: 80 kg

DRUGS (1)
  1. MORPHINE [Suspect]
     Indication: PROCEDURAL PAIN
     Dosage: 2 MG Q4H PRN IV
     Route: 042
     Dates: start: 20080714, end: 20090716

REACTIONS (1)
  - RESPIRATORY DISTRESS [None]
